FAERS Safety Report 9761078 (Version 1)
Quarter: 2013Q4

REPORT INFORMATION
  Report Type: Spontaneous
  Country: GB (occurrence: GB)
  Receive Date: 20131216
  Receipt Date: 20131216
  Transmission Date: 20140711
  Serious: Yes (Other)
  Sender: FDA-Public Use
  Company Number: GB-TEVA-450011ISR

PATIENT
  Age: 32 Year
  Sex: Female

DRUGS (10)
  1. HALOPERIDOL [Suspect]
     Indication: SCHIZOPHRENIA, PARANOID TYPE
     Dosage: 10 MILLIGRAM DAILY;
     Route: 048
     Dates: start: 20111229, end: 20120104
  2. HALOPERIDOL [Suspect]
     Indication: SCHIZOPHRENIA, PARANOID TYPE
     Dosage: 15 MILLIGRAM DAILY;
     Route: 048
     Dates: start: 20120105, end: 20120109
  3. ZOPICLONE [Suspect]
     Indication: INSOMNIA
     Route: 065
     Dates: start: 20120210, end: 20120718
  4. RISPERDAL [Suspect]
     Indication: SCHIZOPHRENIA, PARANOID TYPE
     Dosage: 6 MILLIGRAM DAILY;
     Route: 048
     Dates: start: 20120308, end: 20120609
  5. RISPERDAL [Suspect]
     Indication: SCHIZOPHRENIA, PARANOID TYPE
     Dosage: 3 MG MORNING AND 4 MG (AT NIGHT)
     Route: 048
     Dates: start: 20120221, end: 20120307
  6. RISPERDAL [Suspect]
     Indication: SCHIZOPHRENIA, PARANOID TYPE
     Dosage: 6 MILLIGRAM DAILY; 6 MG IN THE MORNING
     Route: 048
     Dates: start: 20120609, end: 20120821
  7. CHLORPROMAZINE [Suspect]
     Indication: SCHIZOPHRENIA, PARANOID TYPE
     Dosage: 600 MILLIGRAM DAILY;
     Route: 065
     Dates: start: 20120109, end: 20120114
  8. CHLORPROMAZINE [Suspect]
     Indication: SCHIZOPHRENIA, PARANOID TYPE
     Dosage: 75 MILLIGRAM DAILY;
     Route: 065
     Dates: start: 20111215, end: 20111219
  9. PROMETHAZINE [Concomitant]
     Dosage: 50 MILLIGRAM DAILY; DOSAGE FORM: UNSPECIFIED, PRN
     Route: 065
     Dates: start: 20111216
  10. SENNA [Concomitant]
     Dosage: DOSAGE FORM: UNSPECIFIED
     Route: 065
     Dates: start: 20120116

REACTIONS (4)
  - Schizoaffective disorder [Unknown]
  - Exposure during pregnancy [Recovered/Resolved]
  - Blood iron decreased [Unknown]
  - Live birth [Recovered/Resolved]
